FAERS Safety Report 24805628 (Version 1)
Quarter: 2025Q1

REPORT INFORMATION
  Report Type: Spontaneous
  Country: US (occurrence: US)
  Receive Date: 20250103
  Receipt Date: 20250103
  Transmission Date: 20250409
  Serious: Yes (Other)
  Sender: AMGEN
  Company Number: US-AMGEN-USASP2024253609

PATIENT
  Age: 3 Year
  Sex: Female

DRUGS (16)
  1. RITUXIMAB [Suspect]
     Active Substance: RITUXIMAB
     Indication: Post transplant lymphoproliferative disorder
     Dosage: UNK, Q6WK
     Route: 065
  2. PREDNISONE [Suspect]
     Active Substance: PREDNISONE
     Indication: Immunosuppression
     Dosage: 0.2 MILLIGRAM/KILOGRAM, QD
     Route: 065
     Dates: start: 201909, end: 202001
  3. PREDNISONE [Suspect]
     Active Substance: PREDNISONE
     Dosage: 0.2 MILLIGRAM/KILOGRAM, QD
     Route: 065
     Dates: start: 202001, end: 202004
  4. VALGANCICLOVIR [Concomitant]
     Active Substance: VALGANCICLOVIR
     Indication: Prophylaxis
  5. TACROLIMUS [Concomitant]
     Active Substance: TACROLIMUS
     Indication: Immunosuppression
     Dates: start: 201909, end: 202001
  6. TACROLIMUS [Concomitant]
     Active Substance: TACROLIMUS
     Indication: Pyrexia
     Dates: start: 202004, end: 202005
  7. TACROLIMUS [Concomitant]
     Active Substance: TACROLIMUS
     Dates: start: 202008, end: 202101
  8. TACROLIMUS [Concomitant]
     Active Substance: TACROLIMUS
     Dates: start: 202101, end: 202112
  9. MYCOPHENOLATE MOFETIL [Concomitant]
     Active Substance: MYCOPHENOLATE MOFETIL
     Indication: Immunosuppression
     Dosage: 40 MILLIGRAM/KILOGRAM, QD
     Dates: start: 201909, end: 202001
  10. MYCOPHENOLATE MOFETIL [Concomitant]
     Active Substance: MYCOPHENOLATE MOFETIL
     Dosage: 40 MILLIGRAM/KILOGRAM, QD
     Dates: start: 202004, end: 202005
  11. MYCOPHENOLATE MOFETIL [Concomitant]
     Active Substance: MYCOPHENOLATE MOFETIL
     Dosage: 20 MILLIGRAM/KILOGRAM, QD
     Dates: start: 202008, end: 202101
  12. CYCLOSPORINE [Concomitant]
     Active Substance: CYCLOSPORINE
     Route: 040
     Dates: start: 202001, end: 202004
  13. CYCLOSPORINE [Concomitant]
     Active Substance: CYCLOSPORINE
     Route: 040
     Dates: start: 202112, end: 202204
  14. SIROLIMUS [Concomitant]
     Active Substance: SIROLIMUS
  15. AZATHIOPRINE [Concomitant]
     Active Substance: AZATHIOPRINE
     Indication: Pyrexia
     Dosage: 1.3 MILLIGRAM/KILOGRAM, QD
     Dates: start: 202101, end: 202112
  16. SULFASALAZINE [Concomitant]
     Active Substance: SULFASALAZINE

REACTIONS (13)
  - Epstein-Barr viraemia [Unknown]
  - Post transplant lymphoproliferative disorder [Unknown]
  - Cutaneous mucormycosis [Unknown]
  - Renal injury [Unknown]
  - Pancreatitis [Unknown]
  - Gastrointestinal necrosis [Unknown]
  - Drug effective for unapproved indication [Unknown]
  - Off label use [Unknown]
  - COVID-19 [Unknown]
  - Abscess bacterial [Unknown]
  - Abscess fungal [Unknown]
  - Gastritis [Unknown]
  - Diarrhoea [Unknown]
